FAERS Safety Report 14539775 (Version 1)
Quarter: 2018Q1

REPORT INFORMATION
  Report Type: Spontaneous
  Country: US (occurrence: US)
  Receive Date: 20180215
  Receipt Date: 20180215
  Transmission Date: 20180509
  Serious: Yes (Other)
  Sender: FDA-Public Use
  Company Number: None

PATIENT
  Sex: Female

DRUGS (1)
  1. ROCURONIUM BROMIDE. [Suspect]
     Active Substance: ROCURONIUM BROMIDE
     Indication: INDUCTION OF ANAESTHESIA
     Dosage: ?          OTHER FREQUENCY:NOW;?
     Route: 042
     Dates: start: 20180215, end: 20180215

REACTIONS (2)
  - Drug effect incomplete [None]
  - Muscle twitching [None]

NARRATIVE: CASE EVENT DATE: 20180215
